FAERS Safety Report 4367574-0 (Version None)
Quarter: 2004Q2

REPORT INFORMATION
  Report Type: 
  Country: None (occurrence: None)
  Receive Date: 20040526
  Receipt Date: 20040517
  Transmission Date: 20050107
  Serious: Yes (Hospitalization, Other)
  Sender: FDA-Public Use
  Company Number: 2004033211

PATIENT
  Age: 58 Year
  Sex: Male
  Weight: 74.8435 kg

DRUGS (2)
  1. NEURONTIN [Suspect]
     Indication: BIPOLAR DISORDER
     Dosage: 3 IN D
     Dates: start: 20000101, end: 20030501
  2. TRAZODONE HCL [Concomitant]

REACTIONS (7)
  - AGGRESSION [None]
  - ANOREXIA [None]
  - DIET REFUSAL [None]
  - DRUG INTOLERANCE [None]
  - PSYCHOTIC DISORDER [None]
  - SELF-MEDICATION [None]
  - WEIGHT DECREASED [None]
